FAERS Safety Report 5532001-4 (Version None)
Quarter: 2007Q4

REPORT INFORMATION
  Report Type: 
  Country: None (occurrence: None)
  Receive Date: 20071203
  Receipt Date: 20071121
  Transmission Date: 20080405
  Serious: Yes (Death)
  Sender: FDA-Public Use
  Company Number: US-WYE-H00884407

PATIENT
  Sex: Female

DRUGS (4)
  1. EFFEXOR XR [Suspect]
     Indication: ANXIETY
     Route: 048
     Dates: start: 20070901, end: 20070901
  2. EFFEXOR XR [Suspect]
     Indication: DEPRESSION
     Route: 048
     Dates: start: 20070901, end: 20071001
  3. EFFEXOR XR [Suspect]
     Route: 048
     Dates: start: 20071001, end: 20071001
  4. EFFEXOR XR [Suspect]
     Route: 048
     Dates: start: 20071001

REACTIONS (4)
  - DEATH [None]
  - DRUG EFFECT DECREASED [None]
  - HYPERHIDROSIS [None]
  - NAUSEA [None]
